FAERS Safety Report 22321809 (Version 5)
Quarter: 2024Q4

REPORT INFORMATION
  Report Type: Spontaneous
  Country: PT (occurrence: PT)
  Receive Date: 20230516
  Receipt Date: 20241204
  Transmission Date: 20250115
  Serious: Yes (Other)
  Sender: CELLTRION
  Company Number: PT-CELLTRION INC.-2023PT009919

PATIENT

DRUGS (16)
  1. RITUXIMAB [Suspect]
     Active Substance: RITUXIMAB
     Indication: Mantle cell lymphoma
     Dosage: UNK UNK, UNKNOWN FREQ.
     Route: 065
     Dates: start: 20221204, end: 20230426
  2. BENDAMUSTINE [Suspect]
     Active Substance: BENDAMUSTINE
     Indication: Mantle cell lymphoma
     Dosage: UNK
     Route: 065
     Dates: start: 20221204, end: 20230426
  3. CYTARABINE [Suspect]
     Active Substance: CYTARABINE
     Indication: Mantle cell lymphoma
     Dosage: UNK
     Route: 065
  4. CYTARABINE [Suspect]
     Active Substance: CYTARABINE
     Dosage: UNK
     Route: 065
     Dates: start: 20221204, end: 20230426
  5. CYCLOPHOSPHAMIDE [Suspect]
     Active Substance: CYCLOPHOSPHAMIDE
     Indication: Mantle cell lymphoma
     Dosage: UNK UNK, UNKNOWN FREQ. R-CHOP ALTERNATING WITH R-HDAC, HAVING COMPLETED A TOTAL OF SIX CYCLES BY 01/
     Route: 065
  6. VENETOCLAX [Suspect]
     Active Substance: VENETOCLAX
     Indication: Mantle cell lymphoma
     Dosage: UNK UNK, UNKNOWN FREQ.
     Route: 065
     Dates: start: 20191122, end: 20200914
  7. VENETOCLAX [Suspect]
     Active Substance: VENETOCLAX
     Dosage: UNK UNK, UNKNOWN FREQ.
     Route: 065
     Dates: start: 20220620, end: 20221203
  8. VINCRISTINE [Suspect]
     Active Substance: VINCRISTINE
     Indication: Mantle cell lymphoma
     Dosage: UNK UNK, UNKNOWN FREQ.
     Route: 065
  9. DOXORUBICIN [Suspect]
     Active Substance: DOXORUBICIN
     Indication: Mantle cell lymphoma
     Dosage: UNK
     Route: 065
  10. PREDNISONE [Suspect]
     Active Substance: PREDNISONE
     Indication: Mantle cell lymphoma
     Dosage: UNK UNK, UNKNOWN FREQ, R-CHOP ALTERNATING WITH R-HDAC, HAVING COMPLETED A TOTAL OF SIX CYCLES BY 01/
     Route: 065
  11. IBRUTINIB [Suspect]
     Active Substance: IBRUTINIB
     Indication: Mantle cell lymphoma
     Dosage: UNK UNK, UNKNOWN FREQ
     Route: 065
     Dates: start: 20191122, end: 20200914
  12. IBRUTINIB [Suspect]
     Active Substance: IBRUTINIB
     Dosage: UNK UNK, UNKNOWN FREQ
     Route: 065
     Dates: start: 20210426, end: 20210624
  13. IBRUTINIB [Suspect]
     Active Substance: IBRUTINIB
     Dosage: UNK UNK, UNKNOWN FREQ
     Route: 065
     Dates: start: 20220620, end: 20221203
  14. DOXORUBICIN HYDROCHLORIDE [Suspect]
     Active Substance: DOXORUBICIN HYDROCHLORIDE
     Indication: Mantle cell lymphoma
     Dosage: UNK UNK, UNKNOWN FREQ
     Route: 065
  15. BENDAMUSTINE HYDROCHLORIDE [Suspect]
     Active Substance: BENDAMUSTINE HYDROCHLORIDE
     Indication: Mantle cell lymphoma
     Dosage: UNK UNK, CYCLIC
     Route: 042
     Dates: start: 20221204, end: 20230426
  16. COTRIMOXAZOLE [Concomitant]
     Active Substance: SULFAMETHOXAZOLE\TRIMETHOPRIM
     Indication: Product used for unknown indication
     Dosage: UNK UNK, UNKNOWN FREQ
     Route: 065

REACTIONS (3)
  - Neoplasm recurrence [Unknown]
  - Malignant neoplasm progression [Unknown]
  - Intentional product use issue [Unknown]
